FAERS Safety Report 13767989 (Version 10)
Quarter: 2018Q3

REPORT INFORMATION
  Report Type: Spontaneous
  Country: US (occurrence: US)
  Receive Date: 20170719
  Receipt Date: 20180822
  Transmission Date: 20181010
  Serious: No
  Sender: FDA-Public Use
  Company Number: US-PFIZER INC-2017310428

PATIENT
  Age: 64 Year
  Sex: Female
  Weight: 72 kg

DRUGS (4)
  1. FASLODEX [Concomitant]
     Active Substance: FULVESTRANT
     Indication: BREAST CANCER METASTATIC
     Dosage: UNK
  2. IBRANCE [Suspect]
     Active Substance: PALBOCICLIB
     Dosage: 125 MG, CYCLIC (D1?D21 Q28 D)
     Route: 048
     Dates: start: 20170628
  3. IBRANCE [Suspect]
     Active Substance: PALBOCICLIB
     Dosage: 125 MG, CYCLIC (D1?21Q 28 DAYS)
     Route: 048
     Dates: start: 20170628
  4. IBRANCE [Suspect]
     Active Substance: PALBOCICLIB
     Indication: BREAST CANCER METASTATIC
     Dosage: 125 MG, CYCLIC (DAYS1?21 Q28 DAYS)
     Route: 048
     Dates: start: 20170528

REACTIONS (15)
  - Glossitis [Unknown]
  - Dry mouth [Not Recovered/Not Resolved]
  - Gastrooesophageal reflux disease [Not Recovered/Not Resolved]
  - Red blood cell count decreased [Unknown]
  - White blood cell count decreased [Unknown]
  - Abdominal discomfort [Unknown]
  - Constipation [Unknown]
  - Oral pain [Not Recovered/Not Resolved]
  - Oropharyngeal pain [Recovering/Resolving]
  - Blister [Recovered/Resolved]
  - Tongue blistering [Unknown]
  - Condition aggravated [Not Recovered/Not Resolved]
  - Oral mucosal blistering [Unknown]
  - Vomiting [Unknown]
  - Alopecia [Unknown]

NARRATIVE: CASE EVENT DATE: 2017
